FAERS Safety Report 6179146-6 (Version None)
Quarter: 2009Q2

REPORT INFORMATION
  Report Type: 
  Country: None (occurrence: None)
  Receive Date: 20090505
  Receipt Date: 20090425
  Transmission Date: 20091009
  Serious: Yes (Other)
  Sender: FDA-Public Use
  Company Number: PHHY2009BR07926

PATIENT
  Age: 63 Year
  Sex: Female
  Weight: 47 kg

DRUGS (5)
  1. EXFORGE [Suspect]
     Indication: HYPERTENSION
     Dosage: 160/5 MG 1 TABLET
     Route: 048
     Dates: start: 20060101
  2. EXFORGE [Suspect]
     Dosage: 160/5 MG
     Route: 048
     Dates: start: 20090301
  3. LEXOTAN [Concomitant]
     Indication: SLEEP DISORDER
     Dosage: 3 MG, HALF TABLET A DAY
     Route: 048
     Dates: start: 19990101
  4. CALCIUM CARBONATE [Concomitant]
     Indication: THERAPY RESPONDER
     Dosage: 600 MG, 1 TABLET/DAY
     Route: 048
     Dates: start: 20040101
  5. AMLODIPINE [Concomitant]

REACTIONS (5)
  - DENTAL IMPLANTATION [None]
  - DIZZINESS [None]
  - NAUSEA [None]
  - VISUAL IMPAIRMENT [None]
  - WEIGHT DECREASED [None]
